FAERS Safety Report 8277764-2 (Version None)
Quarter: 2012Q2

REPORT INFORMATION
  Report Type: 
  Country: None (occurrence: None)
  Receive Date: 20120412
  Receipt Date: 20120404
  Transmission Date: 20120825
  Serious: Yes (Hospitalization)
  Sender: FDA-Public Use
  Company Number: US-JNJFOC-20120213585

PATIENT
  Sex: Male
  Weight: 83.01 kg

DRUGS (8)
  1. VASOTEC [Concomitant]
  2. XARELTO [Suspect]
     Indication: ATRIAL FIBRILLATION
     Route: 048
     Dates: start: 20120101
  3. ASPIRIN [Concomitant]
     Dates: start: 20120223
  4. SIMVASTATIN [Concomitant]
  5. COREG [Concomitant]
  6. FUROSEMIDE [Concomitant]
  7. XARELTO [Suspect]
     Indication: CEREBROVASCULAR ACCIDENT PROPHYLAXIS
     Route: 048
     Dates: start: 20120101
  8. PLAVIX [Concomitant]

REACTIONS (1)
  - SUBARACHNOID HAEMORRHAGE [None]
